FAERS Safety Report 9820028 (Version 2)
Quarter: 2014Q1

REPORT INFORMATION
  Report Type: Spontaneous
  Country: US (occurrence: None)
  Receive Date: 20131223
  Receipt Date: 20140228
  Transmission Date: 20141002
  Serious: Yes (Other)
  Sender: FDA-Public Use
  Company Number: 220938

PATIENT
  Age: 33 Year
  Sex: Female

DRUGS (4)
  1. PICATO [Suspect]
     Indication: PHOTODERMATOSIS
     Route: 061
     Dates: start: 20130306, end: 20130308
  2. WELLBUTRIN ER (BUPROPION) [Concomitant]
  3. ADDERAL (OBETROL) [Concomitant]
  4. NUVARING [Concomitant]

REACTIONS (7)
  - Migraine [None]
  - Skin exfoliation [None]
  - Application site erythema [None]
  - Application site erythema [None]
  - Application site vesicles [None]
  - Application site scab [None]
  - Application site exfoliation [None]
